FAERS Safety Report 12883025 (Version 1)
Quarter: 2016Q4

REPORT INFORMATION
  Report Type: Spontaneous
  Country: US (occurrence: US)
  Receive Date: 20161025
  Receipt Date: 20161025
  Transmission Date: 20170207
  Serious: No
  Sender: FDA-Public Use
  Company Number: US-FRESENIUS KABI-FK201608109

PATIENT
  Age: 49 Year
  Sex: Female

DRUGS (2)
  1. CYANOCOBALAMIN INJECTION, USP [Suspect]
     Active Substance: CYANOCOBALAMIN
     Indication: VITAMIN B12 DEFICIENCY
  2. CYANOCOBALAMIN INJECTION, USP [Suspect]
     Active Substance: CYANOCOBALAMIN
     Indication: HYPOAESTHESIA
     Route: 030

REACTIONS (4)
  - Drug effect decreased [Recovered/Resolved]
  - Product use issue [Not Recovered/Not Resolved]
  - Muscle contusion [Recovered/Resolved]
  - Off label use [Recovered/Resolved]

NARRATIVE: CASE EVENT DATE: 201607
